FAERS Safety Report 24791155 (Version 1)
Quarter: 2024Q4

REPORT INFORMATION
  Report Type: Spontaneous
  Country: US (occurrence: US)
  Receive Date: 20241230
  Receipt Date: 20241230
  Transmission Date: 20250115
  Serious: Yes (Other)
  Sender: CIPLA
  Company Number: US-CIPLA LTD.-2024US08915

PATIENT

DRUGS (5)
  1. BUDESONIDE [Suspect]
     Active Substance: BUDESONIDE
     Indication: Chronic obstructive pulmonary disease
     Dosage: 1 DOSAGE FORM, BID ( (0.5 MG/2 ML TWICE A DAY))
  2. BROVANA [Concomitant]
     Active Substance: ARFORMOTEROL TARTRATE
     Indication: Chronic obstructive pulmonary disease
     Dosage: UNK, BID (ONE IN MORNING AND ONE IN EVENING)
     Route: 065
     Dates: start: 2018
  3. DORZOLAMIDE [Concomitant]
     Active Substance: DORZOLAMIDE
     Indication: Glaucoma
     Dosage: 1 DROP, BID (1 DROP IN THE MORNING AND 1 DROP IN THE EVENING)
     Route: 065
     Dates: start: 2021
  4. LATANOPROST [Concomitant]
     Active Substance: LATANOPROST
     Indication: Glaucoma
     Dosage: 1 DROP, QD ((ONE DROP IN THE EVENING))
     Route: 065
     Dates: start: 2021
  5. RHOPRESSA [Concomitant]
     Active Substance: NETARSUDIL MESYLATE
     Indication: Glaucoma
     Dosage: 1 DROP, QD ( (ONE DROP IN THE EVENING))
     Route: 065
     Dates: start: 202403

REACTIONS (1)
  - Glaucoma [Not Recovered/Not Resolved]

NARRATIVE: CASE EVENT DATE: 20220101
